FAERS Safety Report 24560458 (Version 1)
Quarter: 2024Q4

REPORT INFORMATION
  Report Type: Spontaneous
  Country: US (occurrence: US)
  Receive Date: 20241029
  Receipt Date: 20241029
  Transmission Date: 20250114
  Serious: No
  Sender: AMGEN
  Company Number: US-AMGEN-USASP2024209846

PATIENT
  Sex: Female

DRUGS (2)
  1. BUPHENYL [Suspect]
     Active Substance: SODIUM PHENYLBUTYRATE
     Indication: Ornithine transcarbamoylase deficiency
     Dosage: 6600 MILLIGRAM, TID (3GM/TSP)
     Route: 048
     Dates: start: 201801
  2. BUPHENYL [Suspect]
     Active Substance: SODIUM PHENYLBUTYRATE
     Indication: Urea cycle disorder

REACTIONS (4)
  - Throat irritation [Unknown]
  - Abdominal discomfort [Unknown]
  - Wrong technique in product usage process [Unknown]
  - Dyspepsia [Unknown]
